FAERS Safety Report 23743055 (Version 1)
Quarter: 2024Q2

REPORT INFORMATION
  Report Type: Spontaneous
  Country: US (occurrence: US)
  Receive Date: 20240415
  Receipt Date: 20240415
  Transmission Date: 20240715
  Serious: No
  Sender: FDA-Public Use
  Company Number: US-PFIZER INC-202400084402

PATIENT
  Age: 17 Year
  Sex: Male

DRUGS (1)
  1. LITFULO [Suspect]
     Active Substance: RITLECITINIB TOSYLATE
     Indication: Alopecia areata
     Dosage: 50 MG, 1X/DAY
     Dates: start: 20200401

REACTIONS (2)
  - Alopecia areata [Unknown]
  - Condition aggravated [Unknown]
